FAERS Safety Report 13813805 (Version 3)
Quarter: 2017Q3

REPORT INFORMATION
  Report Type: Spontaneous
  Country: US (occurrence: US)
  Receive Date: 20170731
  Receipt Date: 20170824
  Transmission Date: 20171127
  Serious: Yes (Other)
  Sender: FDA-Public Use
  Company Number: US-PFIZER INC-2017327248

PATIENT
  Age: 33 Year
  Sex: Female

DRUGS (3)
  1. METHOTREXATE SODIUM. [Suspect]
     Active Substance: METHOTREXATE SODIUM
     Indication: RHEUMATOID ARTHRITIS
     Dosage: 17.5 MG, WEEKLY
  2. METHOTREXATE SODIUM. [Suspect]
     Active Substance: METHOTREXATE SODIUM
     Dosage: 17.5 MG, WEEKLY
  3. ENBREL [Concomitant]
     Active Substance: ETANERCEPT
     Dosage: 50 MG, WEEKLY

REACTIONS (19)
  - Adrenal insufficiency [Unknown]
  - Nausea [Unknown]
  - Fatigue [Unknown]
  - Condition aggravated [Unknown]
  - Fibromyalgia [Unknown]
  - Arthralgia [Unknown]
  - Diarrhoea [Unknown]
  - Undifferentiated connective tissue disease [Unknown]
  - Mouth ulceration [Unknown]
  - Musculoskeletal stiffness [Unknown]
  - Sjogren^s syndrome [Unknown]
  - Treatment failure [Unknown]
  - Rash [Unknown]
  - Skin hypopigmentation [Unknown]
  - Rheumatoid arthritis [Unknown]
  - Pain in extremity [Unknown]
  - Pain [Unknown]
  - Osteoarthritis [Unknown]
  - Neck pain [Unknown]
